FAERS Safety Report 8371570-6 (Version None)
Quarter: 2012Q2

REPORT INFORMATION
  Report Type: 
  Country: None (occurrence: None)
  Receive Date: 20120518
  Receipt Date: 20120510
  Transmission Date: 20120825
  Serious: Yes (Hospitalization, Other)
  Sender: FDA-Public Use
  Company Number: US-ABBOTT-12P-163-0934879-00

PATIENT
  Age: 47 Year
  Sex: Female

DRUGS (9)
  1. CALCIUM +D [Concomitant]
     Indication: PRODUCT USED FOR UNKNOWN INDICATION
  2. DICYCLOMINE [Suspect]
     Indication: GASTROINTESTINAL MOTILITY DISORDER
     Dates: start: 20100101
  3. M.V.I. [Concomitant]
     Indication: PRODUCT USED FOR UNKNOWN INDICATION
  4. VITAMIN B-12 [Concomitant]
     Indication: PRODUCT USED FOR UNKNOWN INDICATION
     Dosage: EVERY 2 WEEKS
  5. FENTANYL-100 [Concomitant]
     Indication: PAIN
     Dosage: PATCH
  6. PROMETHAZINE [Concomitant]
     Indication: NAUSEA
  7. OMEPRAZOLE [Suspect]
     Indication: GASTROINTESTINAL MOTILITY DISORDER
     Dates: start: 20100101
  8. HUMIRA [Suspect]
     Indication: CROHN'S DISEASE
     Dates: start: 20030101, end: 20120201
  9. PROBIOTICS [Concomitant]
     Indication: PRODUCT USED FOR UNKNOWN INDICATION

REACTIONS (15)
  - THROMBOSIS [None]
  - COLONIC OBSTRUCTION [None]
  - IMPAIRED WORK ABILITY [None]
  - FEELING ABNORMAL [None]
  - PYREXIA [None]
  - ABDOMINAL INFECTION [None]
  - WEIGHT DECREASED [None]
  - SMALL INTESTINAL OBSTRUCTION [None]
  - BRONCHITIS [None]
  - ABSCESS INTESTINAL [None]
  - CROHN'S DISEASE [None]
  - INTESTINAL STENOSIS [None]
  - LACERATION [None]
  - FATIGUE [None]
  - VOMITING [None]
